FAERS Safety Report 25774864 (Version 1)
Quarter: 2025Q3

REPORT INFORMATION
  Report Type: Spontaneous
  Country: CN (occurrence: CN)
  Receive Date: 20250908
  Receipt Date: 20250908
  Transmission Date: 20251021
  Serious: Yes (Hospitalization, Other)
  Sender: AIPING PHARMACEUTICAL
  Company Number: CN-AIPING-2025AILIT00142

PATIENT
  Age: 60 Year
  Sex: Female

DRUGS (1)
  1. WARFARIN SODIUM [Suspect]
     Active Substance: WARFARIN SODIUM
     Indication: Atrial fibrillation
     Route: 065

REACTIONS (1)
  - Atrial thrombosis [Unknown]
